FAERS Safety Report 10041493 (Version 2)
Quarter: 2014Q2

REPORT INFORMATION
  Report Type: Spontaneous
  Country: IT (occurrence: FR)
  Receive Date: 20140327
  Receipt Date: 20140519
  Transmission Date: 20141212
  Serious: Yes (Hospitalization)
  Sender: FDA-Public Use
  Company Number: FR-FRI-1000065741

PATIENT
  Age: 62 Year
  Sex: Female

DRUGS (13)
  1. NEBIVOLOL [Suspect]
     Indication: HYPERTENSION
     Dosage: 5 MG
     Route: 048
  2. PRIVIGEN [Suspect]
     Indication: TRANSPLANT REJECTION
     Dosage: 50 G
     Route: 042
     Dates: start: 20131227, end: 20131228
  3. AMBISOME [Suspect]
     Dosage: 7.1429 MG
     Route: 042
  4. CICLOSPORINE [Concomitant]
     Indication: PROPHYLAXIS AGAINST TRANSPLANT REJECTION
     Route: 048
  5. CERTICAN [Concomitant]
     Indication: PROPHYLAXIS AGAINST TRANSPLANT REJECTION
     Route: 048
  6. SOLUPRED [Concomitant]
     Indication: PRODUCT USED FOR UNKNOWN INDICATION
     Dosage: 10 MG
     Route: 048
  7. ZITHROMAX [Concomitant]
     Dosage: 125 MG
     Route: 048
  8. ZELITREX [Concomitant]
     Indication: ANTIVIRAL PROPHYLAXIS
     Dosage: 500 MG
     Route: 048
  9. ESOMEPRAZOLE [Concomitant]
     Dosage: 80 MG
     Route: 048
  10. KEPPRA [Concomitant]
     Dosage: 500 MG
     Route: 048
  11. VASTEN [Concomitant]
     Indication: HYPOCHOLESTEROLAEMIA
     Dosage: 20 MG
     Route: 048
  12. LASILIX [Concomitant]
     Dosage: 20 MG
     Route: 048
  13. AMLOR [Concomitant]
     Indication: HYPERTENSION
     Route: 048
     Dates: start: 201305, end: 2013

REACTIONS (3)
  - Hypertension [Recovered/Resolved]
  - Headache [Recovered/Resolved]
  - Vision blurred [Recovered/Resolved]
